FAERS Safety Report 9679161 (Version 4)
Quarter: 2014Q4

REPORT INFORMATION
  Report Type: Spontaneous
  Country: DE (occurrence: DE)
  Receive Date: 20131108
  Receipt Date: 20141107
  Transmission Date: 20150529
  Serious: Yes (Hospitalization, Other)
  Sender: FDA-Public Use
  Company Number: DE-BAXTER-2013BAX043620

PATIENT
  Age: 1 Year
  Sex: Male
  Weight: 12.75 kg

DRUGS (9)
  1. NOVOSEVEN [Suspect]
     Active Substance: COAGULATION FACTOR VIIA RECOMBINANT HUMAN
     Route: 042
     Dates: start: 20131031
  2. HAEMATE [Concomitant]
     Active Substance: ANTIHEMOPHILIC FACTOR HUMAN
     Indication: IMMUNE TOLERANCE INDUCTION
     Dates: start: 201309, end: 20131018
  3. NOVOSEVEN [Suspect]
     Active Substance: COAGULATION FACTOR VIIA RECOMBINANT HUMAN
     Route: 065
     Dates: start: 20131017, end: 20131017
  4. METHYLPREDNISOLONE. [Concomitant]
     Active Substance: METHYLPREDNISOLONE
     Indication: PRODUCT USED FOR UNKNOWN INDICATION
     Route: 065
     Dates: start: 20131017, end: 20131018
  5. NOVOSEVEN [Suspect]
     Active Substance: COAGULATION FACTOR VIIA RECOMBINANT HUMAN
     Indication: HAEMORRHAGE
     Route: 065
     Dates: start: 20131015
  6. FEIBA NF [Suspect]
     Active Substance: ANTI-INHIBITOR COAGULANT COMPLEX
     Indication: PROPHYLAXIS
     Route: 042
     Dates: start: 20131018, end: 20131018
  7. NOVOSEVEN [Suspect]
     Active Substance: COAGULATION FACTOR VIIA RECOMBINANT HUMAN
     Indication: PROPHYLAXIS
     Route: 065
     Dates: start: 20131017
  8. NOVOSEVEN [Suspect]
     Active Substance: COAGULATION FACTOR VIIA RECOMBINANT HUMAN
     Route: 065
     Dates: start: 20131018
  9. BIOSTATE [Concomitant]
     Indication: IMMUNE TOLERANCE INDUCTION
     Dates: start: 201301, end: 201309

REACTIONS (11)
  - Haematoma [Unknown]
  - Hypertension [Unknown]
  - Cerebrovascular disorder [Unknown]
  - Intestinal haemorrhage [Unknown]
  - Pneumonia [Recovered/Resolved]
  - Cerebrovascular accident [Recovering/Resolving]
  - Ischaemic stroke [Unknown]
  - Hemiparesis [Recovering/Resolving]
  - Haemorrhage [Unknown]
  - Skin lesion [Unknown]
  - Somnolence [Recovering/Resolving]

NARRATIVE: CASE EVENT DATE: 20131018
